FAERS Safety Report 4706046-8 (Version None)
Quarter: 2005Q2

REPORT INFORMATION
  Report Type: 
  Country: None (occurrence: None)
  Receive Date: 20050627
  Receipt Date: 20041014
  Transmission Date: 20051028
  Serious: Yes (Other)
  Sender: FDA-Public Use
  Company Number: US-JNJFOC-20040204558

PATIENT
  Age: 74 Year
  Sex: Male

DRUGS (5)
  1. FENTANYL [Suspect]
     Indication: PAIN
     Dosage: SEE IMAGE
     Route: 062
     Dates: start: 20031201, end: 20040110
  2. FENTANYL [Suspect]
     Indication: PAIN
     Dosage: SEE IMAGE
     Route: 062
     Dates: start: 20040113, end: 20040125
  3. FENTANYL [Suspect]
     Indication: PAIN
     Dosage: SEE IMAGE
     Route: 062
     Dates: start: 20040126, end: 20040505
  4. . [Concomitant]
  5. . [Concomitant]

REACTIONS (7)
  - DRUG ABUSER [None]
  - DRUG INEFFECTIVE [None]
  - EXOPHTHALMOS [None]
  - FEELING ABNORMAL [None]
  - HEADACHE [None]
  - MYDRIASIS [None]
  - SOMNOLENCE [None]
